FAERS Safety Report 13752778 (Version 1)
Quarter: 2017Q3

REPORT INFORMATION
  Report Type: Spontaneous
  Country: US (occurrence: US)
  Receive Date: 20170713
  Receipt Date: 20170713
  Transmission Date: 20171127
  Serious: No
  Sender: FDA-Public Use
  Company Number: None

PATIENT
  Age: 77 Year
  Sex: Male
  Weight: 88.2 kg

DRUGS (17)
  1. ASPIRIN. [Concomitant]
     Active Substance: ASPIRIN
  2. HUMULOG INSULIN [Concomitant]
  3. GABAPENTIN. [Concomitant]
     Active Substance: GABAPENTIN
  4. CIPRO [Concomitant]
     Active Substance: CIPROFLOXACIN HYDROCHLORIDE
  5. CLOPIDOGREL [Concomitant]
     Active Substance: CLOPIDOGREL BISULFATE
  6. LISINOPRIL. [Concomitant]
     Active Substance: LISINOPRIL
  7. VITAMIN D [Concomitant]
     Active Substance: CHOLECALCIFEROL
  8. LANTUS [Concomitant]
     Active Substance: INSULIN GLARGINE
  9. FUROSEMIDE. [Concomitant]
     Active Substance: FUROSEMIDE
  10. CARVEDILOL. [Concomitant]
     Active Substance: CARVEDILOL
  11. LOVENOX [Suspect]
     Active Substance: ENOXAPARIN SODIUM
     Indication: HOSPITALISATION
  12. ATORVASTATIN [Concomitant]
     Active Substance: ATORVASTATIN
  13. VITAMIN C [Concomitant]
     Active Substance: ASCORBIC ACID
  14. TAMSULOSIN [Concomitant]
     Active Substance: TAMSULOSIN
  15. ULTIMATE FLORAMAX ADVANCED CARE 100 BILLION LIVE CULTURE PROBIOTIC [Concomitant]
  16. LOVENOX [Suspect]
     Active Substance: ENOXAPARIN SODIUM
     Indication: BEDRIDDEN
  17. DALVANCE (DALBAVANCIN) [Concomitant]

REACTIONS (1)
  - Injection site pain [None]

NARRATIVE: CASE EVENT DATE: 20170519
